FAERS Safety Report 15995716 (Version 2)
Quarter: 2019Q2

REPORT INFORMATION
  Report Type: Spontaneous
  Country: FR (occurrence: FR)
  Receive Date: 20190222
  Receipt Date: 20190403
  Transmission Date: 20190711
  Serious: Yes (Hospitalization)
  Sender: FDA-Public Use
  Company Number: FR-009507513-1902FRA006378

PATIENT
  Age: 92 Year
  Sex: Male
  Weight: 64.2 kg

DRUGS (3)
  1. ESCITALOPRAM [Suspect]
     Active Substance: ESCITALOPRAM OXALATE
     Indication: MENTAL DISORDER
     Dosage: 1 DOSAGE FORM, QD
     Route: 048
     Dates: start: 20190108, end: 20190123
  2. CEFTRIAXONE SODIUM. [Suspect]
     Active Substance: CEFTRIAXONE SODIUM
     Dosage: 1 GRAM, QD
     Route: 058
     Dates: start: 20190109, end: 20190111
  3. INVANZ [Suspect]
     Active Substance: ERTAPENEM SODIUM
     Dosage: 1 GRAM, QD
     Route: 058
     Dates: start: 20190111, end: 20190116

REACTIONS (3)
  - Thrombocytopenia [Recovered/Resolved]
  - Condition aggravated [Unknown]
  - Leukopenia [Recovered/Resolved]

NARRATIVE: CASE EVENT DATE: 201901
